FAERS Safety Report 6251341-7 (Version None)
Quarter: 2009Q2

REPORT INFORMATION
  Report Type: 
  Country: None (occurrence: None)
  Receive Date: 20090630
  Receipt Date: 20090623
  Transmission Date: 20091009
  Serious: Yes (Hospitalization)
  Sender: FDA-Public Use
  Company Number: A0781093A

PATIENT
  Age: 52 Year
  Sex: Male
  Weight: 116.8 kg

DRUGS (13)
  1. AVANDIA [Suspect]
     Indication: TYPE 1 DIABETES MELLITUS
     Dosage: 8MG PER DAY
     Route: 065
     Dates: start: 20050501, end: 20060611
  2. AVANDAMET [Suspect]
     Indication: DIABETES MELLITUS
     Route: 065
  3. AVANDARYL [Suspect]
     Indication: DIABETES MELLITUS
     Route: 065
  4. CARDIZEM CD [Concomitant]
  5. HUMALOG [Concomitant]
  6. INDOMETHACIN [Concomitant]
  7. NITROGLYCERIN [Concomitant]
  8. ACTOS [Concomitant]
  9. CRESTOR [Concomitant]
  10. LIDODERM [Concomitant]
  11. VITAMIN B COMPLEX CAP [Concomitant]
  12. NIASPAN ER [Concomitant]
  13. PEPCID [Concomitant]

REACTIONS (6)
  - CARDIAC FAILURE CONGESTIVE [None]
  - CORONARY ARTERY DISEASE [None]
  - DILATATION VENTRICULAR [None]
  - MYOCARDIAL INFARCTION [None]
  - MYOCARDIAL ISCHAEMIA [None]
  - VENTRICULAR HYPOKINESIA [None]
